FAERS Safety Report 14253028 (Version 1)
Quarter: 2017Q4

REPORT INFORMATION
  Report Type: Spontaneous
  Country: US (occurrence: US)
  Receive Date: 20171206
  Receipt Date: 20171206
  Transmission Date: 20180321
  Serious: Yes (Death, Hospitalization, Other)
  Sender: FDA-Public Use
  Company Number: US-CIPLA (EU) LIMITED-2016US12853

PATIENT

DRUGS (7)
  1. DILTIAZEM. [Suspect]
     Active Substance: DILTIAZEM
     Indication: HYPERTENSION
     Dosage: 240 MG, UNK
     Route: 048
  2. LABETALOL [Suspect]
     Active Substance: LABETALOL\LABETALOL HYDROCHLORIDE
     Dosage: UNK, EXTRADOSE
     Route: 048
  3. LABETALOL [Suspect]
     Active Substance: LABETALOL\LABETALOL HYDROCHLORIDE
     Indication: HYPERTENSION
     Dosage: 400 MG, UNK
     Route: 048
  4. AMLODIPINE BESYLATE. [Suspect]
     Active Substance: AMLODIPINE BESYLATE
     Indication: HYPERTENSION
     Dosage: 10 MG, UNK
     Route: 048
     Dates: end: 2007
  5. AMLODIPINE BESYLATE. [Suspect]
     Active Substance: AMLODIPINE BESYLATE
     Dosage: UNK, EXTRADOSE
     Route: 048
  6. DILTIAZEM. [Suspect]
     Active Substance: DILTIAZEM
     Dosage: UNK, EXTRADOSE
     Route: 048
  7. LORATADINE. [Suspect]
     Active Substance: LORATADINE
     Dosage: UNK
     Route: 048

REACTIONS (5)
  - Abdominal pain [Unknown]
  - Cardiac arrest [Fatal]
  - Hypotension [Unknown]
  - Toxicity to various agents [Fatal]
  - Medication error [Unknown]
